FAERS Safety Report 5726299-7 (Version None)
Quarter: 2008Q2

REPORT INFORMATION
  Report Type: 
  Country: None (occurrence: None)
  Receive Date: 20080502
  Receipt Date: 20080425
  Transmission Date: 20081010
  Serious: Yes (Other)
  Sender: FDA-Public Use
  Company Number: US-ASTRAZENECA-2008UW08471

PATIENT
  Age: 81 Year
  Sex: Female
  Weight: 68 kg

DRUGS (7)
  1. ARIMIDEX [Suspect]
     Indication: BREAST CANCER
     Route: 048
  2. RADIATION THERAPY [Concomitant]
  3. ATIVAN [Concomitant]
  4. PROCHLOPERAZIN [Concomitant]
  5. NORVASC [Concomitant]
  6. VICODIN [Concomitant]
  7. SYNTHROID [Concomitant]

REACTIONS (5)
  - BACK PAIN [None]
  - FATIGUE [None]
  - NAUSEA [None]
  - NEOPLASM MALIGNANT [None]
  - PHARYNGOLARYNGEAL PAIN [None]
